FAERS Safety Report 5919786-X (Version None)
Quarter: 2008Q4

REPORT INFORMATION
  Report Type: 
  Country: None (occurrence: None)
  Receive Date: 20081015
  Receipt Date: 20081002
  Transmission Date: 20090506
  Serious: Yes (Other)
  Sender: FDA-Public Use
  Company Number: NL-ELI_LILLY_AND_COMPANY-NL200810000741

PATIENT
  Sex: Male
  Weight: 100 kg

DRUGS (2)
  1. ZYPREXA [Suspect]
     Indication: MENTAL DISORDER
     Dosage: 15 MG, UNK
     Route: 048
     Dates: start: 20021001, end: 20030301
  2. MODAFINIL [Concomitant]
     Indication: SOMNOLENCE

REACTIONS (3)
  - HEPATIC ENZYME ABNORMAL [None]
  - HEPATIC NECROSIS [None]
  - LIVER DISORDER [None]
